FAERS Safety Report 8429438-2 (Version None)
Quarter: 2012Q2

REPORT INFORMATION
  Report Type: 
  Country: None (occurrence: None)
  Receive Date: 20120612
  Receipt Date: 20120604
  Transmission Date: 20120825
  Serious: Yes (Other)
  Sender: FDA-Public Use
  Company Number: FR-UCBSA-057600

PATIENT
  Age: 30 Year
  Sex: Female
  Weight: 45 kg

DRUGS (3)
  1. CIMZIA [Suspect]
     Indication: RHEUMATOID ARTHRITIS
     Route: 058
     Dates: start: 20120511
  2. ACETAMINOPHEN [Concomitant]
     Indication: HEADACHE
     Dosage: PRN
     Route: 048
  3. CIMZIA [Suspect]
     Route: 058
     Dates: start: 20120426, end: 20120101

REACTIONS (4)
  - HERPES ZOSTER [None]
  - ALOPECIA [None]
  - ACNE [None]
  - INJECTION SITE ERYTHEMA [None]
